FAERS Safety Report 9866419 (Version 1)
Quarter: 2014Q1

REPORT INFORMATION
  Report Type: Report from Study
  Country: MX (occurrence: MX)
  Receive Date: 20140204
  Receipt Date: 20140204
  Transmission Date: 20141002
  Serious: Yes (Disabling, Other)
  Sender: FDA-Public Use
  Company Number: MX-ROCHE-1342587

PATIENT
  Age: 60 Year
  Sex: Male

DRUGS (3)
  1. LUCENTIS [Suspect]
     Indication: VISUAL ACUITY REDUCED
     Dosage: 0.5 MG/0.05 ML
     Route: 050
     Dates: start: 201302
  2. MICARDIS PLUS [Concomitant]
     Indication: HYPERTENSION
     Route: 048
  3. INSULIN [Concomitant]
     Indication: TYPE 2 DIABETES MELLITUS
     Route: 058

REACTIONS (5)
  - Blindness [Recovered/Resolved]
  - Intraocular pressure increased [Recovered/Resolved]
  - Eye haemorrhage [Recovered/Resolved]
  - Cataract [Not Recovered/Not Resolved]
  - Inappropriate schedule of drug administration [Unknown]
